FAERS Safety Report 19239486 (Version 2)
Quarter: 2021Q2

REPORT INFORMATION
  Report Type: Spontaneous
  Country: AR (occurrence: AR)
  Receive Date: 20210510
  Receipt Date: 20210604
  Transmission Date: 20210717
  Serious: Yes (Other)
  Sender: FDA-Public Use
  Company Number: AR-PFIZER INC-2021481008

PATIENT
  Age: 75 Year
  Sex: Female

DRUGS (3)
  1. XELJANZ XR [Suspect]
     Active Substance: TOFACITINIB CITRATE
     Indication: RHEUMATOID ARTHRITIS
     Dosage: 11 MG, 1X/DAY
     Dates: start: 20190327
  2. XELJANZ XR [Suspect]
     Active Substance: TOFACITINIB CITRATE
     Dosage: 11 MG, 1X/DAY
     Dates: start: 20190527
  3. METHOTREXATE. [Concomitant]
     Active Substance: METHOTREXATE
     Dosage: 10 MG, UNSPECIFIED FREQUENCY
     Dates: start: 201907, end: 202101

REACTIONS (4)
  - Gait inability [Recovering/Resolving]
  - Malaise [Not Recovered/Not Resolved]
  - Limb injury [Recovering/Resolving]
  - Osteoarthritis [Unknown]

NARRATIVE: CASE EVENT DATE: 20210212
